FAERS Safety Report 9517306 (Version 2)
Quarter: 2013Q3

REPORT INFORMATION
  Report Type: Spontaneous
  Country: US (occurrence: US)
  Receive Date: 20130911
  Receipt Date: 20130924
  Transmission Date: 20140515
  Serious: No
  Sender: FDA-Public Use
  Company Number: US-ASTRAZENECA-2013SE60961

PATIENT
  Age: 61 Year
  Sex: Male
  Weight: 102.1 kg

DRUGS (3)
  1. SYMBICORT [Suspect]
     Indication: CHRONIC OBSTRUCTIVE PULMONARY DISEASE
     Dosage: 80/4.5 MCG BID
     Route: 055
     Dates: start: 201212
  2. SYMBICORT [Suspect]
     Indication: CHRONIC OBSTRUCTIVE PULMONARY DISEASE
     Dosage: 80/4.5 MCG BID
     Route: 055
  3. ALBUTEROL [Concomitant]

REACTIONS (4)
  - Chest pain [Unknown]
  - Depression [Unknown]
  - Off label use [Unknown]
  - Intentional drug misuse [Unknown]
